FAERS Safety Report 4627112-1 (Version None)
Quarter: 2005Q2

REPORT INFORMATION
  Report Type: 
  Country: None (occurrence: None)
  Receive Date: 20050401
  Receipt Date: 20050401
  Transmission Date: 20051028
  Serious: Yes (Hospitalization)
  Sender: FDA-Public Use
  Company Number: None

PATIENT
  Sex: Female
  Weight: 56.246 kg

DRUGS (6)
  1. VELCADE [Suspect]
     Indication: CERVIX CARCINOMA
     Dosage: 1.35 MG/M2 D1,4,8,11 Q21D INTRAVENOUS
     Route: 042
     Dates: start: 20050314, end: 20050325
  2. VELCADE [Suspect]
     Indication: METASTASIS
     Dosage: 1.35 MG/M2 D1,4,8,11 Q21D INTRAVENOUS
     Route: 042
     Dates: start: 20050314, end: 20050325
  3. CAMPTOSAR [Suspect]
     Dosage: 75 MG/M2 D1,D8 Q21D INTRAVENOUS
     Route: 042
     Dates: start: 20050314, end: 20050322
  4. OXYCONTIN [Concomitant]
  5. OXYCODONE HCL [Concomitant]
  6. ZOFRAN [Concomitant]

REACTIONS (5)
  - CONFUSIONAL STATE [None]
  - CONSTIPATION [None]
  - FATIGUE [None]
  - HYPERCALCAEMIA [None]
  - PAIN [None]
